FAERS Safety Report 7683094-X (Version None)
Quarter: 2011Q3

REPORT INFORMATION
  Report Type: 
  Country: None (occurrence: None)
  Receive Date: 20110815
  Receipt Date: 20110802
  Transmission Date: 20111222
  Serious: Yes (Life-Threatening, Hospitalization)
  Sender: FDA-Public Use
  Company Number: FR-ELI_LILLY_AND_COMPANY-FR201108000648

PATIENT
  Sex: Male

DRUGS (6)
  1. MIRTAZAPINE [Concomitant]
     Dosage: 15 MG, TID
     Route: 048
     Dates: start: 20100901, end: 20101002
  2. LYRICA [Concomitant]
     Dosage: 150 MG, TID
     Route: 048
     Dates: start: 20100901, end: 20101002
  3. ZOLPIDEM [Concomitant]
     Dosage: 10 MG, QD
     Route: 048
  4. CYMBALTA [Suspect]
     Indication: DEPRESSION
     Dosage: 60 MG, QD
     Route: 048
     Dates: start: 20100901, end: 20101002
  5. OXAZEPAM [Concomitant]
     Dosage: 10 MG, QD
     Route: 048
  6. LEVOTHYROXINE SODIUM [Concomitant]
     Dosage: 125 UG, QD
     Route: 048

REACTIONS (8)
  - BLOOD CALCIUM DECREASED [None]
  - PNEUMONIA ASPIRATION [None]
  - BLOOD PHOSPHORUS DECREASED [None]
  - HYPONATRAEMIA [None]
  - BLOOD CHLORIDE DECREASED [None]
  - POLYDIPSIA [None]
  - BLOOD MAGNESIUM DECREASED [None]
  - AGITATION [None]
